FAERS Safety Report 5294830-4 (Version None)
Quarter: 2007Q2

REPORT INFORMATION
  Report Type: 
  Country: None (occurrence: None)
  Receive Date: 20070412
  Receipt Date: 20070403
  Transmission Date: 20071010
  Serious: Yes (Disabling, Other)
  Sender: FDA-Public Use
  Company Number: US-ELI_LILLY_AND_COMPANY-US200704000882

PATIENT
  Sex: Female

DRUGS (2)
  1. HUMALOG [Suspect]
     Indication: DIABETES MELLITUS
     Dosage: UNK, AS NEEDED
     Dates: start: 20040101
  2. LANTUS [Concomitant]
     Indication: DIABETES MELLITUS

REACTIONS (4)
  - BLINDNESS [None]
  - EYE HAEMORRHAGE [None]
  - MACULAR DEGENERATION [None]
  - VISION BLURRED [None]
